FAERS Safety Report 9835047 (Version 1)
Quarter: 2014Q1

REPORT INFORMATION
  Report Type: Spontaneous
  Country: US (occurrence: US)
  Receive Date: 20140122
  Receipt Date: 20140122
  Transmission Date: 20141002
  Serious: Yes (Other)
  Sender: FDA-Public Use
  Company Number: US-TMC-CABO-14003927

PATIENT
  Age: 52 Year
  Sex: Male

DRUGS (1)
  1. COMETRIQ [Suspect]
     Indication: RENAL CANCER
     Dosage: 60 MG, QD
     Route: 048
     Dates: start: 20131209

REACTIONS (5)
  - Depressed level of consciousness [Unknown]
  - Mental status changes [Unknown]
  - Hyperhidrosis [Unknown]
  - Sunburn [Unknown]
  - Off label use [Unknown]
